FAERS Safety Report 7085778-3 (Version None)
Quarter: 2010Q4

REPORT INFORMATION
  Report Type: 
  Country: None (occurrence: None)
  Receive Date: 20101105
  Receipt Date: 20101103
  Transmission Date: 20110411
  Serious: Yes (Other)
  Sender: FDA-Public Use
  Company Number: DE-ROXANE LABORATORIES, INC.-2010-RO-01453RO

PATIENT
  Age: 18 Year
  Sex: Male

DRUGS (3)
  1. RISPERIDONE [Suspect]
     Indication: SCHIZOPHRENIA, PARANOID TYPE
     Dosage: 6 MG
  2. QUETIAPINE [Suspect]
     Indication: EXTRAPYRAMIDAL DISORDER
     Dosage: 800 MG
  3. AMISULPRIDE [Suspect]
     Indication: PSYCHIATRIC SYMPTOM
     Dosage: 600 MG

REACTIONS (9)
  - ANHEDONIA [None]
  - APATHY [None]
  - BLUNTED AFFECT [None]
  - DISTURBANCE IN ATTENTION [None]
  - DRUG INEFFECTIVE [None]
  - EXTRAPYRAMIDAL DISORDER [None]
  - HALLUCINATION, AUDITORY [None]
  - HALLUCINATIONS, MIXED [None]
  - WEIGHT INCREASED [None]
